FAERS Safety Report 6960053-3 (Version None)
Quarter: 2010Q3

REPORT INFORMATION
  Report Type: 
  Country: None (occurrence: None)
  Receive Date: 20100901
  Receipt Date: 20100823
  Transmission Date: 20110219
  Serious: Yes (Death, Hospitalization, Other)
  Sender: FDA-Public Use
  Company Number: DE-BAYER-201036893GPV

PATIENT
  Age: 67 Year
  Sex: Female
  Weight: 65 kg

DRUGS (3)
  1. BETAFERON [Suspect]
     Indication: MULTIPLE SCLEROSIS
     Route: 058
     Dates: start: 20090518, end: 20100420
  2. ZOPICLON [Concomitant]
     Dosage: 1 X 1
     Dates: start: 20090423, end: 20100428
  3. IBUPROFEN RET. [Concomitant]
     Dates: start: 20090608

REACTIONS (1)
  - PSYCHOTIC DISORDER [None]
